FAERS Safety Report 9010166 (Version 3)
Quarter: 2013Q2

REPORT INFORMATION
  Report Type: Spontaneous
  Country: US (occurrence: US)
  Receive Date: 20130110
  Receipt Date: 20130401
  Transmission Date: 20140414
  Serious: Yes (Death, Hospitalization, Other)
  Sender: FDA-Public Use
  Company Number: PHEH2013US000735

PATIENT
  Age: 60 Year
  Sex: Female

DRUGS (5)
  1. TASIGNA [Suspect]
     Dosage: 200 MG, BID
     Route: 048
     Dates: start: 20100510
  2. TASIGNA [Suspect]
     Dosage: 150 MG, QD
     Dates: start: 20110104
  3. TASIGNA [Suspect]
     Dosage: 150 MG, ONE ALTERNATING WITH 2 DAILY
  4. TASIGNA [Suspect]
     Dosage: 150 MG, BID
  5. COUMADINE [Concomitant]
     Dosage: 0.5 DF, QD EXCEPT ON MONDAY AND FRIDAY (1 DF)

REACTIONS (60)
  - Lung disorder [Fatal]
  - Myocardial infarction [Fatal]
  - Thrombosis [Fatal]
  - Sudden death [Fatal]
  - Asthma [Unknown]
  - Perirectal abscess [Unknown]
  - Pyrexia [Unknown]
  - Nausea [Unknown]
  - Vomiting [Unknown]
  - Dyspnoea [Unknown]
  - Anal abscess [Unknown]
  - Haemorrhagic cyst [Unknown]
  - Tumour haemorrhage [Unknown]
  - Haemorrhage [Unknown]
  - Blood glucose decreased [Unknown]
  - Renal impairment [Unknown]
  - Anaemia [Unknown]
  - Staphylococcus test positive [Unknown]
  - Post procedural complication [Unknown]
  - Gastric disorder [Unknown]
  - Synovial cyst [Unknown]
  - Sputum decreased [Unknown]
  - General physical health deterioration [Unknown]
  - Feeling abnormal [Unknown]
  - Somnolence [Unknown]
  - Chest discomfort [Unknown]
  - Sinus congestion [Unknown]
  - Paraesthesia [Unknown]
  - Flatulence [Unknown]
  - Glossodynia [Unknown]
  - Retching [Unknown]
  - Weight decreased [Unknown]
  - Malaise [Unknown]
  - Rash [Unknown]
  - Disturbance in attention [Unknown]
  - Asthenia [Unknown]
  - Abdominal distension [Unknown]
  - Pruritus [Unknown]
  - Eosinophilia [Unknown]
  - Myalgia [Unknown]
  - Cough [Unknown]
  - Headache [Unknown]
  - Chills [Unknown]
  - Dizziness [Unknown]
  - Dyspnoea exertional [Unknown]
  - Constipation [Unknown]
  - Tongue pruritus [Unknown]
  - Oedema peripheral [Unknown]
  - Decreased appetite [Unknown]
  - Stomatitis [Unknown]
  - Palpitations [Unknown]
  - Epistaxis [Unknown]
  - Dysgeusia [Unknown]
  - Dry skin [Unknown]
  - Contusion [Unknown]
  - Wheezing [Unknown]
  - Dyspepsia [Unknown]
  - Night sweats [Unknown]
  - Arthralgia [Unknown]
  - Weight increased [Unknown]
